FAERS Safety Report 4354527-1 (Version None)
Quarter: 2004Q2

REPORT INFORMATION
  Report Type: 
  Country: None (occurrence: None)
  Receive Date: 20040506
  Receipt Date: 20040506
  Transmission Date: 20050107
  Serious: Yes (Death)
  Sender: FDA-Public Use
  Company Number: None

PATIENT
  Age: 46 Year
  Sex: Female
  Weight: 78 kg

DRUGS (2)
  1. CISPLATIN [Suspect]
     Indication: CERVIX CARCINOMA RECURRENT
     Dosage: 50 MG/M2 (94 MG)
     Dates: start: 20040428
  2. TOPOTECAN 0.75 MG/M2 [Suspect]
     Dosage: 0.75 MG/M2  (1.41MG)
     Dates: start: 20040428

REACTIONS (7)
  - CARDIO-RESPIRATORY ARREST [None]
  - CERVIX CARCINOMA STAGE IV [None]
  - DECREASED APPETITE [None]
  - LOSS OF CONSCIOUSNESS [None]
  - MARKEDLY REDUCED DIETARY INTAKE [None]
  - PALPITATIONS [None]
  - SINUS TACHYCARDIA [None]
